FAERS Safety Report 19889985 (Version 1)
Quarter: 2021Q3

REPORT INFORMATION
  Report Type: Spontaneous
  Country: IN (occurrence: IN)
  Receive Date: 20210927
  Receipt Date: 20210927
  Transmission Date: 20211014
  Serious: Yes (Hospitalization, Other)
  Sender: FDA-Public Use
  Company Number: IN-VIIV HEALTHCARE LIMITED-IN2021GSK195185

PATIENT
  Age: 50 Year
  Sex: Male

DRUGS (6)
  1. LAMIVUDINE HIV [Suspect]
     Active Substance: LAMIVUDINE
     Indication: HIV INFECTION
     Dosage: UNK
  2. TENOFOVIR DISOPROXIL FUMARATE. [Suspect]
     Active Substance: TENOFOVIR DISOPROXIL FUMARATE
     Indication: HIV INFECTION
     Dosage: UNK
  3. FLUCONAZOLE. [Suspect]
     Active Substance: FLUCONAZOLE
     Indication: OESOPHAGEAL CANDIDIASIS
     Dosage: UNK
  4. SULPHAMETHOXAZOLE + TRIMETHOPRIM [Suspect]
     Active Substance: SULFAMETHOXAZOLE\TRIMETHOPRIM
     Indication: PNEUMOCYSTIS JIROVECII PNEUMONIA
     Dosage: UNK
     Route: 042
  5. EFAVIRENZ. [Suspect]
     Active Substance: EFAVIRENZ
     Indication: HIV INFECTION
     Dosage: UNK
  6. DAPSONE. [Concomitant]
     Active Substance: DAPSONE
     Indication: PROPHYLAXIS
     Dosage: UNK

REACTIONS (18)
  - Skin lesion [Recovered/Resolved]
  - Cachexia [Recovered/Resolved]
  - Oral candidiasis [Recovered/Resolved]
  - Treatment noncompliance [Unknown]
  - Erythema [Recovered/Resolved]
  - Oral mucosal erythema [Recovered/Resolved]
  - Dysphagia [Recovered/Resolved]
  - Condition aggravated [Recovered/Resolved]
  - Diarrhoea [Recovered/Resolved]
  - Blood electrolytes abnormal [Recovered/Resolved]
  - Therapy non-responder [Unknown]
  - Oesophageal candidiasis [Recovered/Resolved]
  - Cryptosporidiosis infection [Recovered/Resolved]
  - Dehydration [Recovered/Resolved]
  - Cytomegalovirus oesophagitis [Recovered/Resolved]
  - Punctate keratitis [Recovered/Resolved]
  - Ichthyosis [Recovered/Resolved]
  - SJS-TEN overlap [Recovered/Resolved]
